FAERS Safety Report 23201532 (Version 2)
Quarter: 2023Q4

REPORT INFORMATION
  Report Type: Spontaneous
  Country: DE (occurrence: DE)
  Receive Date: 20231118
  Receipt Date: 20231122
  Transmission Date: 20240109
  Serious: Yes (Congenital Anomaly, Other)
  Sender: FDA-Public Use
  Company Number: DE-ABBVIE-5494742

PATIENT

DRUGS (1)
  1. ACITRETIN [Suspect]
     Active Substance: ACITRETIN
     Indication: Maternal exposure timing unspecified
     Route: 064

REACTIONS (2)
  - Kidney malformation [Unknown]
  - Foetal exposure during pregnancy [Unknown]
